FAERS Safety Report 19802750 (Version 1)
Quarter: 2021Q3

REPORT INFORMATION
  Report Type: Spontaneous
  Country: US (occurrence: US)
  Receive Date: 20210908
  Receipt Date: 20210908
  Transmission Date: 20211014
  Serious: No
  Sender: FDA-Public Use
  Company Number: US-AVET LIFESCIENCES LTD-2021-AVET-000008

PATIENT
  Sex: Female

DRUGS (1)
  1. BUPROPION HYDROCHLORIDE. [Suspect]
     Active Substance: BUPROPION HYDROCHLORIDE
     Indication: DEPRESSION
     Dosage: 75 MILLIGRAM, QD
     Route: 048

REACTIONS (6)
  - Restlessness [Unknown]
  - Hostility [Unknown]
  - Agitation [Unknown]
  - Paranoia [Unknown]
  - Psychotic disorder [Unknown]
  - Anger [Unknown]

NARRATIVE: CASE EVENT DATE: 20210903
